FAERS Safety Report 13023011 (Version 1)
Quarter: 2016Q4

REPORT INFORMATION
  Report Type: Report from Study
  Country: US (occurrence: US)
  Receive Date: 20161213
  Receipt Date: 20161213
  Transmission Date: 20170207
  Serious: Yes (Hospitalization, Other)
  Sender: FDA-Public Use
  Company Number: US-JNJFOC-20161203701

PATIENT
  Age: 19 Year
  Sex: Male
  Weight: 53.98 kg

DRUGS (1)
  1. STELARA [Suspect]
     Active Substance: USTEKINUMAB
     Indication: PRODUCT USED FOR UNKNOWN INDICATION
     Route: 058

REACTIONS (3)
  - Sepsis [Recovered/Resolved]
  - Atypical pneumonia [Unknown]
  - Erythrodermic psoriasis [Unknown]

NARRATIVE: CASE EVENT DATE: 20141226
